FAERS Safety Report 12712809 (Version 2)
Quarter: 2016Q4

REPORT INFORMATION
  Report Type: Spontaneous
  Country: US (occurrence: US)
  Receive Date: 20160902
  Receipt Date: 20161110
  Transmission Date: 20170207
  Serious: Yes (Other)
  Sender: FDA-Public Use
  Company Number: US-JNJFOC-20160826560

PATIENT
  Age: 74 Year
  Sex: Female
  Weight: 34.92 kg

DRUGS (4)
  1. IMBRUVICA [Suspect]
     Active Substance: IBRUTINIB
     Indication: CHRONIC LYMPHOCYTIC LEUKAEMIA
     Route: 065
     Dates: end: 20160809
  2. IMBRUVICA [Suspect]
     Active Substance: IBRUTINIB
     Indication: CHRONIC LYMPHOCYTIC LEUKAEMIA
     Route: 065
     Dates: start: 20160824
  3. ACYCLOVIR. [Concomitant]
     Active Substance: ACYCLOVIR
  4. FOSAMAX [Concomitant]
     Active Substance: ALENDRONATE SODIUM

REACTIONS (1)
  - Cardiomyopathy acute [Recovered/Resolved]

NARRATIVE: CASE EVENT DATE: 201608
